FAERS Safety Report 7953446-9 (Version None)
Quarter: 2011Q4

REPORT INFORMATION
  Report Type: 
  Country: None (occurrence: None)
  Receive Date: 20111202
  Receipt Date: 20111128
  Transmission Date: 20120403
  Serious: No
  Sender: FDA-Public Use
  Company Number: US-PFIZER INC-2011290545

PATIENT
  Sex: Female
  Weight: 58.957 kg

DRUGS (3)
  1. NORVASC [Suspect]
     Indication: HYPERTENSION
     Dosage: 2.5 MG, DAILY
     Route: 048
  2. FLECTOR [Suspect]
     Indication: JOINT SWELLING
     Dosage: 1.3 %, DAILY
     Route: 061
     Dates: start: 20111113, end: 20111114
  3. CHONDROITIN/GLUCOSAMINE/METHYLSULFONYLMETHANE [Concomitant]
     Indication: ARTHROPATHY
     Dosage: TWICE DAILY

REACTIONS (7)
  - BURNING SENSATION [None]
  - PRURITUS [None]
  - DYSARTHRIA [None]
  - WOUND [None]
  - NAUSEA [None]
  - FATIGUE [None]
  - ABDOMINAL DISCOMFORT [None]
